FAERS Safety Report 4676750-9 (Version None)
Quarter: 2005Q2

REPORT INFORMATION
  Report Type: 
  Country: None (occurrence: None)
  Receive Date: 20050527
  Receipt Date: 20050514
  Transmission Date: 20051028
  Serious: Yes (Death)
  Sender: FDA-Public Use
  Company Number: 2005075667

PATIENT
  Sex: 0

DRUGS (1)
  1. DIFLUCAN [Suspect]
     Indication: VAGINAL MYCOSIS
     Dosage: 150  MG (150 MG, SINGLE ADMINISTRATION), ORAL
     Route: 048
     Dates: start: 20050421

REACTIONS (2)
  - DRUG EXPOSURE DURING PREGNANCY [None]
  - INTRA-UTERINE DEATH [None]
